FAERS Safety Report 11150137 (Version 5)
Quarter: 2015Q4

REPORT INFORMATION
  Report Type: Spontaneous
  Country: JP (occurrence: JP)
  Receive Date: 20150529
  Receipt Date: 20151127
  Transmission Date: 20160304
  Serious: Yes (Hospitalization, Disabling, Other)
  Sender: FDA-Public Use
  Company Number: JP-ASTRAZENECA-2014SE73421

PATIENT
  Age: 922 Month
  Sex: Male
  Weight: 57 kg

DRUGS (13)
  1. NEXIUM [Suspect]
     Active Substance: ESOMEPRAZOLE MAGNESIUM
     Indication: PROPHYLAXIS AGAINST GASTROINTESTINAL ULCER
     Route: 048
     Dates: start: 20130209, end: 20140816
  2. VOGLIBOSE [Concomitant]
     Active Substance: VOGLIBOSE
     Indication: DIABETES MELLITUS
     Route: 048
  3. ATELEC [Concomitant]
     Active Substance: CILNIDIPINE
     Indication: HYPERTENSION
     Route: 048
  4. BAYASPIRIN [Suspect]
     Active Substance: ASPIRIN
     Indication: PERIPHERAL ARTERIAL OCCLUSIVE DISEASE
     Route: 048
     Dates: start: 20130209, end: 20140816
  5. METHYCOBAL [Concomitant]
     Active Substance: METHYLCOBALAMIN
     Indication: NEUROPATHY PERIPHERAL
     Route: 048
  6. LIPITOR [Concomitant]
     Active Substance: ATORVASTATIN CALCIUM
     Indication: DYSLIPIDAEMIA
     Route: 048
  7. FERROMIA [Concomitant]
     Active Substance: FERROUS CITRATE
     Indication: IRON DEFICIENCY ANAEMIA
     Route: 048
  8. PLETAAL [Concomitant]
     Active Substance: CILOSTAZOL
     Indication: PERIPHERAL ARTERIAL OCCLUSIVE DISEASE
     Route: 048
  9. ARTIST [Concomitant]
     Active Substance: CARVEDILOL
     Indication: HYPERTENSION
     Route: 048
  10. OLMETEC [Concomitant]
     Active Substance: OLMESARTAN MEDOXOMIL
     Indication: HYPERTENSION
     Route: 048
  11. LASIX [Concomitant]
     Active Substance: FUROSEMIDE
     Route: 048
  12. KREMEZIN [Concomitant]
     Active Substance: ACTIVATED CHARCOAL
     Indication: CHRONIC KIDNEY DISEASE
     Route: 048
  13. HEAVY MAGNESIUM OXIDE [Concomitant]
     Indication: PERIPHERAL ARTERIAL OCCLUSIVE DISEASE
     Route: 048

REACTIONS (7)
  - Dehydration [Recovering/Resolving]
  - Colitis microscopic [Recovering/Resolving]
  - Pleural effusion [Recovering/Resolving]
  - Colon adenoma [Recovering/Resolving]
  - Hypercapnia [Recovering/Resolving]
  - Malnutrition [Recovering/Resolving]
  - Renal failure [Recovering/Resolving]

NARRATIVE: CASE EVENT DATE: 201406
